FAERS Safety Report 5135045-X (Version None)
Quarter: 2006Q4

REPORT INFORMATION
  Report Type: 
  Country: None (occurrence: None)
  Receive Date: 20060831
  Receipt Date: 20060502
  Transmission Date: 20070319
  Serious: No
  Sender: FDA-Public Use
  Company Number: 2006-BP-20454BP

PATIENT
  Age: 60 Year
  Sex: Female

DRUGS (9)
  1. SPIRIVA [Suspect]
     Indication: CHRONIC OBSTRUCTIVE PULMONARY DISEASE
     Dosage: 18 MCG (18 MCG,1 IN 1 D),IH
     Route: 055
     Dates: start: 20050901
  2. SPIRIVA [Suspect]
     Indication: EMPHYSEMA
     Dosage: 18 MCG (18 MCG,1 IN 1 D),IH
     Route: 055
     Dates: start: 20050901
  3. SPIRIVA [Suspect]
  4. SPIRIVA [Suspect]
  5. SPIRIVA [Suspect]
  6. OXYGEN (OXYGEN) [Concomitant]
  7. ZETIA [Concomitant]
  8. PRAVACHOL [Concomitant]
  9. METFORMIN HCL [Concomitant]

REACTIONS (2)
  - AGEUSIA [None]
  - DYSPNOEA [None]
